FAERS Safety Report 11827076 (Version 1)
Quarter: 2015Q4

REPORT INFORMATION
  Report Type: Spontaneous
  Country: US (occurrence: US)
  Receive Date: 20151211
  Receipt Date: 20151211
  Transmission Date: 20160305
  Serious: No
  Sender: FDA-Public Use
  Company Number: US-AKRON, INC.-1045377

PATIENT
  Age: 77 Year
  Sex: Male

DRUGS (1)
  1. DORZOLAMIDE HCI [Suspect]
     Active Substance: DORZOLAMIDE HYDROCHLORIDE

REACTIONS (5)
  - Muscle twitching [Unknown]
  - Dysgeusia [Unknown]
  - Cerebrovascular accident [Unknown]
  - Pruritus [Unknown]
  - Burning sensation [Unknown]
